FAERS Safety Report 5151191-9 (Version None)
Quarter: 2006Q4

REPORT INFORMATION
  Report Type: 
  Country: None (occurrence: None)
  Receive Date: 20061114
  Receipt Date: 20061114
  Transmission Date: 20070319
  Serious: No
  Sender: FDA-Public Use
  Company Number: None

PATIENT
  Sex: Male
  Weight: 68.0396 kg

DRUGS (1)
  1. VISINE               PFIZER [Suspect]
     Dosage: FEW DROPS  IN MORNING CUTANEOUS
     Route: 003

REACTIONS (2)
  - HEADACHE [None]
  - HYPERHIDROSIS [None]
